FAERS Safety Report 7406796-9 (Version None)
Quarter: 2011Q2

REPORT INFORMATION
  Report Type: 
  Country: None (occurrence: None)
  Receive Date: 20110411
  Receipt Date: 20110330
  Transmission Date: 20111010
  Serious: Yes (Hospitalization, Other)
  Sender: FDA-Public Use
  Company Number: PHHY2011US26178

PATIENT
  Age: 82 Year
  Sex: Female

DRUGS (16)
  1. ALENDRONATE SODIUM [Suspect]
     Indication: OSTEOPOROSIS
     Dosage: 70 MG, WEEKLY
  2. VITAMIN B-12 [Concomitant]
     Dosage: 1000 UG, EVERY 3 MONTH
  3. TOLTERODINE TARTRATE [Concomitant]
     Indication: PAIN
     Dosage: 4 MG/DAY
  4. FERROUS SULFATE TAB [Concomitant]
     Indication: IRON DEFICIENCY ANAEMIA
     Dosage: 325 MG/DAY
  5. PANTOPRAZOLE [Concomitant]
     Indication: GASTROOESOPHAGEAL REFLUX DISEASE
     Dosage: 40 MG/DAY
  6. AMITRIPTYLINE HCL [Suspect]
     Indication: INSOMNIA
     Dosage: 50 MG/DAY
  7. LIDOCAINE [Concomitant]
     Indication: BACK PAIN
     Dosage: 5 %, 12 HOURS ON AND 12 HOURS OFF
     Route: 062
  8. OXYCODONE [Concomitant]
     Indication: PAIN
     Dosage: 10 MG, BID
  9. BUMETANIDE [Concomitant]
     Dosage: 0.5 MG, DAY
  10. ASPIRIN [Concomitant]
     Dosage: 81 MG/DAY
  11. CALCITRIOL [Concomitant]
     Dosage: 0.25 UG, DAY
  12. SIMVASTATIN [Concomitant]
     Indication: HYPERLIPIDAEMIA
     Dosage: 40 MG/DAY
  13. TIAGABINE HCL [Concomitant]
     Indication: NEURALGIA
     Dosage: 4 MG, TID
  14. AMIODARONE HCL [Interacting]
     Indication: ATRIAL FIBRILLATION
     Dosage: 200 MG/DAY
  15. VITAMIN D [Concomitant]
     Dosage: 1000 U/DAY
  16. TIZANIDINE [Concomitant]
     Indication: BACK PAIN
     Dosage: 2 MG IN THE MORNING AND 4 MG AT NOON AND NIGHT

REACTIONS (11)
  - DYSKINESIA [None]
  - BLOOD CREATININE INCREASED [None]
  - DEHYDRATION [None]
  - DRUG INTERACTION [None]
  - EXTRAPYRAMIDAL DISORDER [None]
  - MOVEMENT DISORDER [None]
  - BLOOD UREA INCREASED [None]
  - DRY MOUTH [None]
  - ASTHENIA [None]
  - DYSARTHRIA [None]
  - TREMOR [None]
